FAERS Safety Report 8709950 (Version 2)
Quarter: 2012Q4

REPORT INFORMATION
  Report Type: 
  Country: US (occurrence: US)
  Receive Date: 20120806
  Receipt Date: 20121105
  Transmission Date: 20130627
  Serious: Yes (Other)
  Sender: FDA-Public Use
  Company Number: US-ASTRAZENECA-2012SE53814

PATIENT
  Age: 65 Year
  Sex: Female

DRUGS (3)
  1. NEXIUM [Suspect]
     Route: 048
  2. PRILOSEC [Suspect]
     Route: 048
  3. OTHER MEDICATIONS [Suspect]
     Route: 065

REACTIONS (3)
  - Neoplasm malignant [Unknown]
  - Malaise [Unknown]
  - Drug ineffective [Unknown]
